FAERS Safety Report 6496777-4 (Version None)
Quarter: 2009Q4

REPORT INFORMATION
  Report Type: 
  Country: None (occurrence: None)
  Receive Date: 20091125
  Receipt Date: 20090722
  Transmission Date: 20100525
  Serious: Yes (Other)
  Sender: FDA-Public Use
  Company Number: 2009BH011800

PATIENT
  Age: 76 Year
  Sex: Female

DRUGS (17)
  1. DIANEAL [Suspect]
     Indication: PERITONEAL DIALYSIS
     Dosage: 12 L ; EVERY DAY ; IP
     Route: 033
     Dates: start: 20061110
  2. EPOGEN [Concomitant]
  3. AGGRENOX [Concomitant]
  4. MULTI-VITAMINS [Concomitant]
  5. ZEMPLAR [Concomitant]
  6. METOPROLOL [Concomitant]
  7. KLOR-CON [Concomitant]
  8. RENAGEL [Concomitant]
  9. ENALAPRIL MALEATE [Concomitant]
  10. COLACE [Concomitant]
  11. ZANTAC [Concomitant]
  12. CELEBREX [Concomitant]
  13. FISH OIL [Concomitant]
  14. SIMVASTATIN [Concomitant]
  15. GENTAMICIN [Concomitant]
  16. LASIX [Concomitant]
  17. NITROGLYCERIN [Concomitant]

REACTIONS (1)
  - PERITONITIS BACTERIAL [None]
